FAERS Safety Report 14450117 (Version 1)
Quarter: 2018Q1

REPORT INFORMATION
  Report Type: Report from Study
  Country: ES (occurrence: ES)
  Receive Date: 20180129
  Receipt Date: 20180129
  Transmission Date: 20180509
  Serious: Yes (Death, Hospitalization)
  Sender: FDA-Public Use
  Company Number: ES-ROCHE-2058216

PATIENT

DRUGS (8)
  1. CISPLATIN. [Suspect]
     Active Substance: CISPLATIN
     Indication: GASTRIC CANCER
     Route: 065
  2. CAPECITABINE. [Suspect]
     Active Substance: CAPECITABINE
     Indication: GASTRIC CANCER
     Route: 065
  3. OXALIPLATIN. [Suspect]
     Active Substance: OXALIPLATIN
     Indication: GASTRIC CANCER
     Route: 065
  4. FLUOROURACIL. [Suspect]
     Active Substance: FLUOROURACIL
     Indication: GASTRIC CANCER
     Route: 042
  5. LEUCOVORIN. [Suspect]
     Active Substance: LEUCOVORIN
     Indication: GASTRIC CANCER
     Route: 065
  6. TEGAFUR [Suspect]
     Active Substance: TEGAFUR
     Indication: GASTRIC CANCER
     Route: 065
  7. CARBOPLATIN. [Suspect]
     Active Substance: CARBOPLATIN
     Indication: GASTRIC CANCER
     Route: 065
  8. EPIRUBICIN [Suspect]
     Active Substance: EPIRUBICIN
     Indication: GASTRIC CANCER
     Route: 065

REACTIONS (17)
  - Thrombocytopenia [Unknown]
  - Stomatitis [Unknown]
  - Neuropathy peripheral [Unknown]
  - Death [Fatal]
  - Neutropenia [Unknown]
  - Febrile neutropenia [Unknown]
  - Hyperbilirubinaemia [Unknown]
  - Nephropathy toxic [Unknown]
  - Vomiting [Unknown]
  - Palmar-plantar erythrodysaesthesia syndrome [Unknown]
  - Aspartate aminotransferase increased [Unknown]
  - Cardiotoxicity [Unknown]
  - Anaemia [Unknown]
  - Fatigue [Unknown]
  - Diarrhoea [Unknown]
  - Embolism venous [Unknown]
  - Alopecia [Unknown]
